FAERS Safety Report 18769227 (Version 1)
Quarter: 2021Q1

REPORT INFORMATION
  Report Type: Spontaneous
  Country: US (occurrence: US)
  Receive Date: 20210121
  Receipt Date: 20210121
  Transmission Date: 20210419
  Serious: No
  Sender: FDA-Public Use
  Company Number: US-ASTRAZENECA-2021A010613

PATIENT

DRUGS (4)
  1. PRILOSEC [Suspect]
     Active Substance: OMEPRAZOLE MAGNESIUM
     Route: 048
     Dates: start: 199701, end: 201908
  2. PREVACID [Suspect]
     Active Substance: LANSOPRAZOLE
     Route: 065
     Dates: start: 199701, end: 201908
  3. PRILOSEC OTC [Suspect]
     Active Substance: OMEPRAZOLE MAGNESIUM
     Route: 048
     Dates: start: 199701, end: 201908
  4. NEXIUM [Suspect]
     Active Substance: ESOMEPRAZOLE MAGNESIUM
     Route: 048
     Dates: start: 199701, end: 201908

REACTIONS (5)
  - Rebound effect [Unknown]
  - Chronic kidney disease [Unknown]
  - Hyperchlorhydria [Unknown]
  - Pain [Unknown]
  - Drug dependence [Unknown]
